FAERS Safety Report 10566506 (Version 2)
Quarter: 2015Q1

REPORT INFORMATION
  Report Type: Spontaneous
  Country: DK (occurrence: DK)
  Receive Date: 20141105
  Receipt Date: 20150102
  Transmission Date: 20150720
  Serious: Yes (Hospitalization, Disabling)
  Sender: FDA-Public Use
  Company Number: DK-PFIZER INC-2014303201

PATIENT
  Age: 22 Year
  Sex: Female

DRUGS (2)
  1. SALAZOPYRIN [Suspect]
     Active Substance: SULFASALAZINE
     Indication: CROHN^S DISEASE
     Dosage: UNK
     Route: 048
     Dates: start: 201012, end: 201306
  2. PREDNISOLON KLYSMA [Concomitant]
     Indication: CROHN^S DISEASE
     Route: 054

REACTIONS (16)
  - Tenderness [Unknown]
  - Headache [Unknown]
  - Iron deficiency [Unknown]
  - Feeling abnormal [Unknown]
  - Haemoglobin decreased [Unknown]
  - Renal impairment [Unknown]
  - Vascular injury [Unknown]
  - Visual impairment [Unknown]
  - Tubulointerstitial nephritis [Unknown]
  - Flank pain [Unknown]
  - Blood count abnormal [Unknown]
  - Pyelonephritis [Unknown]
  - Haematuria [Unknown]
  - Head discomfort [Unknown]
  - Contusion [Unknown]
  - Urinary tract infection [Unknown]

NARRATIVE: CASE EVENT DATE: 2012
